FAERS Safety Report 5879033-4 (Version None)
Quarter: 2008Q3

REPORT INFORMATION
  Report Type: 
  Country: None (occurrence: None)
  Receive Date: 20080912
  Receipt Date: 20080904
  Transmission Date: 20090109
  Serious: Yes (Hospitalization, Other)
  Sender: FDA-Public Use
  Company Number: PHHY2008GB20691

PATIENT
  Sex: Male

DRUGS (1)
  1. CLOZARIL [Suspect]
     Indication: SCHIZOPHRENIA
     Dosage: UNK
     Dates: start: 19970822

REACTIONS (5)
  - DYSPNOEA [None]
  - HYPERTENSION [None]
  - MYOCARDITIS [None]
  - OVERWEIGHT [None]
  - TACHYCARDIA [None]
